FAERS Safety Report 9931015 (Version 3)
Quarter: 2014Q1

REPORT INFORMATION
  Report Type: Report from Study
  Country: IL (occurrence: IL)
  Receive Date: 20140227
  Receipt Date: 20140313
  Transmission Date: 20141002
  Serious: Yes (Hospitalization)
  Sender: FDA-Public Use
  Company Number: IL-TEVA-465030USA

PATIENT
  Age: 74 Year
  Sex: Female
  Weight: 51 kg

DRUGS (3)
  1. BENDAMUSTINE [Suspect]
     Indication: CHRONIC LYMPHOCYTIC LEUKAEMIA
     Route: 065
  2. RITUXIMAB [Suspect]
     Indication: CHRONIC LYMPHOCYTIC LEUKAEMIA
     Dosage: FREQUENCY: ONCE A MONTH FOR 6 TIME
     Route: 042
     Dates: start: 20130603
  3. IBRUTINIB/PLACEBO [Suspect]
     Indication: CHRONIC LYMPHOCYTIC LEUKAEMIA
     Dosage: 140 MILLIGRAM DAILY;
     Dates: start: 20130604

REACTIONS (1)
  - Elective procedure [Recovered/Resolved]
